FAERS Safety Report 5284012-4 (Version None)
Quarter: 2007Q1

REPORT INFORMATION
  Report Type: 
  Country: None (occurrence: None)
  Receive Date: 20070327
  Receipt Date: 20070315
  Transmission Date: 20070707
  Serious: Yes (Life-Threatening, Hospitalization)
  Sender: FDA-Public Use
  Company Number: 219343

PATIENT
  Age: 45 Year
  Sex: Female
  Weight: 140.6 kg

DRUGS (5)
  1. RAPTIVA [Suspect]
     Indication: PSORIASIS
     Dosage: 1.4 ML, 1/WEEK, SUBCUTANEOUS
     Route: 058
     Dates: start: 20050101, end: 20050804
  2. LEVAQUIN [Concomitant]
  3. AMARYL [Concomitant]
  4. MAXZIDE [Concomitant]
  5. ASPIRIN [Concomitant]

REACTIONS (3)
  - ABASIA [None]
  - GUILLAIN-BARRE SYNDROME [None]
  - NASOPHARYNGITIS [None]
